FAERS Safety Report 4558423-6 (Version None)
Quarter: 2005Q1

REPORT INFORMATION
  Report Type: 
  Country: None (occurrence: None)
  Receive Date: 20050121
  Receipt Date: 20050112
  Transmission Date: 20050727
  Serious: Yes (Hospitalization, Other)
  Sender: FDA-Public Use
  Company Number: PHBS2005JP00879

PATIENT
  Age: 38 Year
  Sex: Female

DRUGS (3)
  1. CYCLOSPORINE [Suspect]
     Dosage: 150-80 MG/D
     Route: 065
     Dates: start: 20030501
  2. METHOTREXATE [Concomitant]
     Dosage: 22 MG-15 MG/D
     Dates: start: 20030501
  3. METHYLPREDNISOLONE [Concomitant]
     Dosage: 1000-10 MG/D
     Route: 065

REACTIONS (8)
  - ACUTE RESPIRATORY DISTRESS SYNDROME [None]
  - BLOOD BILIRUBIN INCREASED [None]
  - GRAFT VERSUS HOST DISEASE [None]
  - HEPATIC VEIN OCCLUSION [None]
  - HEPATOSPLENOMEGALY [None]
  - JAUNDICE [None]
  - NEOPLASM RECURRENCE [None]
  - WEIGHT INCREASED [None]
